FAERS Safety Report 11664297 (Version 1)
Quarter: 2015Q4

REPORT INFORMATION
  Report Type: Report from Study
  Country: US (occurrence: US)
  Receive Date: 20151027
  Receipt Date: 20151027
  Transmission Date: 20160304
  Serious: No
  Sender: FDA-Public Use
  Company Number: PHHY2013US112779

PATIENT
  Age: 7 Year
  Sex: Male

DRUGS (2)
  1. EXJADE [Suspect]
     Active Substance: DEFERASIROX
     Dosage: 875 OT, UNK
     Route: 048
     Dates: start: 20130920, end: 20140529
  2. EXJADE [Suspect]
     Active Substance: DEFERASIROX
     Indication: HAEMOSIDEROSIS
     Dosage: 750 OT, UNK
     Route: 048
     Dates: start: 20111116, end: 20130919

REACTIONS (6)
  - Leukocytosis [Recovered/Resolved]
  - Pyrexia [Recovered/Resolved]
  - Tonsillar hypertrophy [Recovered/Resolved]
  - Sleep apnoea syndrome [Recovered/Resolved]
  - Priapism [Recovered/Resolved]
  - Rhinitis allergic [Not Recovered/Not Resolved]

NARRATIVE: CASE EVENT DATE: 20130726
